FAERS Safety Report 16965769 (Version 6)
Quarter: 2020Q1

REPORT INFORMATION
  Report Type: Spontaneous
  Country: US (occurrence: US)
  Receive Date: 20191028
  Receipt Date: 20200205
  Transmission Date: 20200409
  Serious: Yes (Other)
  Sender: FDA-Public Use
  Company Number: US-PFIZER INC-2019462863

PATIENT
  Age: 73 Year
  Sex: Female

DRUGS (1)
  1. PREMARIN [Suspect]
     Active Substance: ESTROGENS, CONJUGATED
     Indication: BLADDER PROLAPSE
     Dosage: UNK
     Route: 067

REACTIONS (5)
  - Product use in unapproved indication [Unknown]
  - Off label use [Unknown]
  - Cataract [Unknown]
  - Dysphonia [Unknown]
  - Nasopharyngitis [Unknown]
